FAERS Safety Report 4825040-X (Version None)
Quarter: 2005Q4

REPORT INFORMATION
  Report Type: 
  Country: None (occurrence: None)
  Receive Date: 20051014
  Receipt Date: 20050809
  Transmission Date: 20060501
  Serious: No
  Sender: FDA-Public Use
  Company Number: 2005SP002292

PATIENT
  Age: 56 Year
  Sex: Male
  Weight: 113.3993 kg

DRUGS (5)
  1. LUNESTA [Suspect]
     Indication: INSOMNIA
     Dosage: 4 MG;HS;ORAL    UNKNOWN;HS;ORAL
     Route: 048
     Dates: start: 20050420, end: 20050101
  2. LUNESTA [Suspect]
     Indication: INSOMNIA
     Dosage: 4 MG;HS;ORAL    UNKNOWN;HS;ORAL
     Route: 048
     Dates: start: 20050101
  3. AMBIEN [Concomitant]
  4. GABAPENTIN [Concomitant]
  5. OMEPRAZOLE [Concomitant]

REACTIONS (2)
  - DRUG EFFECT DECREASED [None]
  - INSOMNIA [None]
